FAERS Safety Report 16351517 (Version 2)
Quarter: 2019Q2

REPORT INFORMATION
  Report Type: Spontaneous
  Country: US (occurrence: US)
  Receive Date: 20190524
  Receipt Date: 20190607
  Transmission Date: 20190711
  Serious: Yes (Hospitalization, Other)
  Sender: FDA-Public Use
  Company Number: US-BAYER-2019-096611

PATIENT
  Sex: Male

DRUGS (6)
  1. VANCOMYCIN HCL [Suspect]
     Active Substance: VANCOMYCIN HYDROCHLORIDE
     Indication: MEDICAL DEVICE SITE JOINT INFECTION
     Dosage: 1 G
     Route: 042
     Dates: start: 20180724, end: 201807
  2. VANCOMYCIN HCL [Suspect]
     Active Substance: VANCOMYCIN HYDROCHLORIDE
     Indication: MEDICAL DEVICE SITE JOINT INFECTION
     Dosage: 2 G, QD
     Route: 042
     Dates: start: 201807, end: 201807
  3. WARFARIN [Concomitant]
     Active Substance: WARFARIN
     Dosage: 2 MG, QD
  4. VANCOMYCIN HCL [Suspect]
     Active Substance: VANCOMYCIN HYDROCHLORIDE
     Indication: MEDICAL DEVICE SITE JOINT INFECTION
     Dosage: 1 G, QD
     Dates: start: 201807, end: 20180729
  5. CIPROFLOXACIN MONOHYDROCHLORIDE [Suspect]
     Active Substance: CIPROFLOXACIN
     Indication: MEDICAL DEVICE SITE JOINT INFECTION
     Dosage: UNK
     Dates: start: 201807
  6. VANCOMYCIN HCL [Suspect]
     Active Substance: VANCOMYCIN HYDROCHLORIDE
     Indication: MEDICAL DEVICE SITE JOINT INFECTION
     Dosage: 2.5 G, QD
     Route: 042
     Dates: start: 201807, end: 201807

REACTIONS (2)
  - Acute kidney injury [Recovered/Resolved]
  - Hyponatraemia [Recovered/Resolved]

NARRATIVE: CASE EVENT DATE: 20180726
